FAERS Safety Report 21530564 (Version 1)
Quarter: 2022Q4

REPORT INFORMATION
  Report Type: Spontaneous
  Country: US (occurrence: None)
  Receive Date: 20221029
  Receipt Date: 20221029
  Transmission Date: 20230113
  Serious: Yes (Other)
  Sender: FDA-Public Use
  Company Number: None

PATIENT
  Age: 67 Year
  Sex: Male
  Weight: 108 kg

DRUGS (6)
  1. MOUNJARO [Suspect]
     Active Substance: TIRZEPATIDE
     Indication: Diabetes mellitus
     Dosage: OTHER FREQUENCY : WEEKLY;?
     Route: 058
     Dates: start: 20220904, end: 20221016
  2. Goupizide [Concomitant]
  3. EZETIMIBE [Concomitant]
     Active Substance: EZETIMIBE
  4. LISINOPRIL [Concomitant]
     Active Substance: LISINOPRIL
  5. ASPIRIN [Concomitant]
     Active Substance: ASPIRIN
  6. METFORMIN [Concomitant]
     Active Substance: METFORMIN HYDROCHLORIDE

REACTIONS (3)
  - Injection site pruritus [None]
  - Injection site erythema [None]
  - Injection site mass [None]

NARRATIVE: CASE EVENT DATE: 20221016
